FAERS Safety Report 23237697 (Version 1)
Quarter: 2023Q4

REPORT INFORMATION
  Report Type: Report from Study
  Country: NL (occurrence: NL)
  Receive Date: 20231128
  Receipt Date: 20231128
  Transmission Date: 20240110
  Serious: Yes (Death)
  Sender: FDA-Public Use
  Company Number: NL-ABBVIE-5517067

PATIENT
  Age: 78 Year
  Sex: Male

DRUGS (9)
  1. CARBIDOPA\LEVODOPA [Suspect]
     Active Substance: CARBIDOPA\LEVODOPA
     Indication: Parkinson^s disease
     Dosage: MD: 6.0ML, CD: 2.6ML/H, ED: 4.0ML, GOES TO 24 HOURS
     Route: 050
     Dates: start: 20230607, end: 20230731
  2. CARBIDOPA\LEVODOPA [Suspect]
     Active Substance: CARBIDOPA\LEVODOPA
     Dosage: MND: 0.0ML, END: 4.0ML, CND: 1.3ML.H, GOES TO 24 HOURS
     Route: 050
     Dates: start: 20230601, end: 20230602
  3. CARBIDOPA\LEVODOPA [Suspect]
     Active Substance: CARBIDOPA\LEVODOPA
     Route: 050
     Dates: start: 20170221
  4. CARBIDOPA\LEVODOPA [Suspect]
     Active Substance: CARBIDOPA\LEVODOPA
     Dosage: MD: 6.0ML, CD: 2.8ML/H, ED: 4.0ML, CND: 1.3ML/H, END: 4.0ML, REMAINS AT 24 HOURS
     Route: 050
     Dates: start: 20230906, end: 20231108
  5. CARBIDOPA\LEVODOPA [Suspect]
     Active Substance: CARBIDOPA\LEVODOPA
     Dosage: END: 4.0ML, CND: 1.3ML.H, REMAINS AT 16 HOURS
     Route: 050
     Dates: start: 20230602, end: 20230607
  6. CARBIDOPA\LEVODOPA [Suspect]
     Active Substance: CARBIDOPA\LEVODOPA
     Dosage: MD: 6.0ML, CD: 2.8ML/H, ED: 4.0ML, CND: 1.3ML/H, REMAINS AT 24 HOURS
     Route: 050
     Dates: start: 20231108
  7. CARBIDOPA\LEVODOPA [Suspect]
     Active Substance: CARBIDOPA\LEVODOPA
     Dosage: MD: 9.0ML, CD: 2.6ML/H, ED: 4.0ML, REMAINS AT 16 HOURS
     Route: 050
     Dates: start: 20230515, end: 20230601
  8. CARBIDOPA\LEVODOPA [Suspect]
     Active Substance: CARBIDOPA\LEVODOPA
     Dosage: MD: 6.0ML, CD: 2.8ML/H, ED: 4.0ML, REMAINS AT 24 HOURS
     Route: 050
     Dates: start: 20230731, end: 20230906
  9. CARBIDOPA\LEVODOPA [Concomitant]
     Active Substance: CARBIDOPA\LEVODOPA
     Indication: Parkinson^s disease
     Dosage: STRENGTH:125 MG

REACTIONS (1)
  - Euthanasia [Fatal]

NARRATIVE: CASE EVENT DATE: 20231123
